FAERS Safety Report 25092160 (Version 2)
Quarter: 2025Q2

REPORT INFORMATION
  Report Type: Report from Study
  Country: CA (occurrence: CA)
  Receive Date: 20250319
  Receipt Date: 20250401
  Transmission Date: 20250716
  Serious: Yes (Death, Other)
  Sender: Alvotech
  Company Number: CA-JAMP PHARMA CORPORATION-2025-JAM-CA-00380

PATIENT
  Age: 85 Year
  Sex: Female

DRUGS (1)
  1. SIMLANDI [Suspect]
     Active Substance: ADALIMUMAB-RYVK
     Indication: Pyoderma gangrenosum
     Dosage: 40 MG,WEEKLY
     Route: 058
     Dates: start: 20230506

REACTIONS (2)
  - Death [Fatal]
  - Off label use [Unknown]
